FAERS Safety Report 7167531-5 (Version None)
Quarter: 2010Q4

REPORT INFORMATION
  Report Type: 
  Country: None (occurrence: None)
  Receive Date: 20101216
  Receipt Date: 20100308
  Transmission Date: 20110411
  Serious: No
  Sender: FDA-Public Use
  Company Number: A0848796A

PATIENT
  Age: 37 Year
  Sex: Female

DRUGS (1)
  1. NICOTINE POLACRILEX [Suspect]
     Dates: end: 20100307

REACTIONS (2)
  - GINGIVAL BLEEDING [None]
  - TONGUE ULCERATION [None]
